FAERS Safety Report 8285833-6 (Version None)
Quarter: 2012Q2

REPORT INFORMATION
  Report Type: 
  Country: None (occurrence: None)
  Receive Date: 20120413
  Receipt Date: 20120404
  Transmission Date: 20120825
  Serious: Yes (Hospitalization)
  Sender: FDA-Public Use
  Company Number: FR-ELI_LILLY_AND_COMPANY-FR201111005329

PATIENT
  Age: 63 Year
  Sex: Female

DRUGS (12)
  1. PRAVIGARD PAC (COPACKAGED) [Concomitant]
  2. ADANCOR [Concomitant]
  3. LASIX [Concomitant]
  4. MORPHINE [Concomitant]
     Indication: PAIN
  5. AMITRIPTYLINE HCL [Concomitant]
  6. FORTEO [Suspect]
     Indication: OSTEOPOROSIS
     Dosage: 20 UG, QD
     Route: 058
     Dates: start: 20110606, end: 20120125
  7. FORTEO [Suspect]
     Dosage: 20 UG, QD
     Route: 058
     Dates: start: 20120126
  8. VOGALENE [Concomitant]
  9. PREVISCAN [Concomitant]
     Dosage: 0.5 DF, QD
  10. PROPRANOLOL [Concomitant]
  11. OXYCODONE HCL [Concomitant]
  12. NEURONTIN [Concomitant]

REACTIONS (7)
  - NAUSEA [None]
  - TONGUE ERUPTION [None]
  - DIARRHOEA [None]
  - HYPERCALCAEMIA [None]
  - MOUTH ULCERATION [None]
  - GASTROENTERITIS [None]
  - ADRENAL INSUFFICIENCY [None]
